FAERS Safety Report 5228873-3 (Version None)
Quarter: 2007Q1

REPORT INFORMATION
  Report Type: 
  Country: None (occurrence: None)
  Receive Date: 20070205
  Receipt Date: 20070129
  Transmission Date: 20070707
  Serious: Yes (Other)
  Sender: FDA-Public Use
  Company Number: US-JNJFOC-20070107485

PATIENT
  Age: 73 Year
  Sex: Female

DRUGS (4)
  1. EXTRA STRENGTH TYLENOL [Suspect]
  2. EXTRA STRENGTH TYLENOL [Suspect]
     Indication: ARTHRALGIA
  3. ATENOLOL [Concomitant]
     Indication: HYPERTENSION
     Dosage: ONE EVERY AM
  4. CLONIDINE [Concomitant]
     Indication: HYPERTENSION
     Dosage: ONE EVERY PM

REACTIONS (1)
  - BLOOD PRESSURE INCREASED [None]
